FAERS Safety Report 14925851 (Version 4)
Quarter: 2019Q3

REPORT INFORMATION
  Report Type: Spontaneous
  Country: US (occurrence: US)
  Receive Date: 20180522
  Receipt Date: 20190731
  Transmission Date: 20191004
  Serious: No
  Sender: FDA-Public Use
  Company Number: US-ACTELION-A-US2018-171609

PATIENT
  Age: 34 Year
  Sex: Female
  Weight: 92.06 kg

DRUGS (7)
  1. TYVASO [Suspect]
     Active Substance: TREPROSTINIL
     Indication: PRODUCT USED FOR UNKNOWN INDICATION
     Dosage: UNK
     Route: 065
     Dates: start: 20190603
  2. SILDENAFIL CITRATE. [Concomitant]
     Active Substance: SILDENAFIL CITRATE
  3. TYVASO [Suspect]
     Active Substance: TREPROSTINIL
     Dosage: 2 BREATHS, QD
     Route: 065
     Dates: start: 20190607
  4. SILDENAFIL. [Concomitant]
     Active Substance: SILDENAFIL
     Dosage: UNK
     Dates: end: 20180421
  5. OPSUMIT [Suspect]
     Active Substance: MACITENTAN
     Indication: PULMONARY HYPERTENSION
  6. OPSUMIT [Suspect]
     Active Substance: MACITENTAN
     Indication: PULMONARY ARTERIAL HYPERTENSION
     Dosage: 10 MG, QD
     Route: 048
     Dates: start: 20180215
  7. TYVASO [Suspect]
     Active Substance: TREPROSTINIL
     Dosage: 2 BREATHS, QID
     Route: 065
     Dates: start: 20190605

REACTIONS (6)
  - Respiration abnormal [Unknown]
  - Headache [Unknown]
  - Hypotension [Unknown]
  - Dizziness [Unknown]
  - Product dose omission [Unknown]
  - Pain in jaw [Unknown]

NARRATIVE: CASE EVENT DATE: 20180421
